FAERS Safety Report 18829105 (Version 1)
Quarter: 2021Q1

REPORT INFORMATION
  Report Type: Spontaneous
  Country: US (occurrence: US)
  Receive Date: 20210201
  Receipt Date: 20210201
  Transmission Date: 20210419
  Serious: No
  Sender: FDA-Public Use
  Company Number: US-ABBVIE-20K-163-3554113-00

PATIENT
  Age: 51 Year
  Sex: Female

DRUGS (8)
  1. HUMIRA [Suspect]
     Active Substance: ADALIMUMAB
     Indication: PSORIASIS
  2. SAXENDA [Concomitant]
     Active Substance: LIRAGLUTIDE
     Indication: GLUCOSE TOLERANCE IMPAIRED
  3. HUMIRA [Suspect]
     Active Substance: ADALIMUMAB
     Indication: HIDRADENITIS
     Route: 058
     Dates: start: 201909, end: 202003
  4. LIPITOR (NON?ABBVIE) [Concomitant]
     Indication: BLOOD CHOLESTEROL INCREASED
  5. HUMIRA [Suspect]
     Active Substance: ADALIMUMAB
     Indication: HIDRADENITIS
     Route: 058
     Dates: start: 202008
  6. HUMIRA [Suspect]
     Active Substance: ADALIMUMAB
     Indication: PSORIASIS
  7. SAXENDA [Concomitant]
     Active Substance: LIRAGLUTIDE
     Indication: WEIGHT DECREASED
  8. PROGESTERONE. [Concomitant]
     Active Substance: PROGESTERONE
     Indication: NEOPLASM PROPHYLAXIS

REACTIONS (5)
  - Product dispensing error [Recovered/Resolved]
  - Wrong technique in product usage process [Recovered/Resolved]
  - Incorrect dose administered [Recovered/Resolved]
  - Injection site reaction [Recovered/Resolved]
  - Panic reaction [Recovered/Resolved]

NARRATIVE: CASE EVENT DATE: 20200820
